FAERS Safety Report 14956912 (Version 2)
Quarter: 2018Q3

REPORT INFORMATION
  Report Type: Report from Study
  Country: US (occurrence: US)
  Receive Date: 20180531
  Receipt Date: 20180731
  Transmission Date: 20181010
  Serious: Yes (Hospitalization, Other)
  Sender: FDA-Public Use
  Company Number: PHEH2018US020464

PATIENT
  Age: 58 Year
  Sex: Female
  Weight: 90.71 kg

DRUGS (2)
  1. COSENTYX [Suspect]
     Active Substance: SECUKINUMAB
     Indication: PAIN
  2. COSENTYX [Suspect]
     Active Substance: SECUKINUMAB
     Indication: ANKYLOSING SPONDYLITIS
     Dosage: 150 MG, QMO
     Route: 058

REACTIONS (6)
  - Renal failure [Unknown]
  - Pain [Not Recovered/Not Resolved]
  - Staphylococcal infection [Unknown]
  - Cellulitis [Unknown]
  - Joint swelling [Unknown]
  - Femur fracture [Unknown]

NARRATIVE: CASE EVENT DATE: 201805
